FAERS Safety Report 7476645-1 (Version None)
Quarter: 2011Q2

REPORT INFORMATION
  Report Type: 
  Country: None (occurrence: None)
  Receive Date: 20110512
  Receipt Date: 20110503
  Transmission Date: 20111010
  Serious: Yes (Other)
  Sender: FDA-Public Use
  Company Number: US-ASTRAZENECA-2011SE25792

PATIENT
  Age: 43 Year
  Sex: Female
  Weight: 120 kg

DRUGS (10)
  1. SEROQUEL [Suspect]
     Indication: DEPRESSION
     Route: 048
     Dates: start: 20110301
  2. CHANTIX [Suspect]
     Route: 048
     Dates: start: 20110101, end: 20110424
  3. MULTI-VITAMINS [Concomitant]
  4. SEROQUEL [Suspect]
     Route: 048
     Dates: end: 20110301
  5. LORTAB [Suspect]
     Indication: BONE PAIN
     Dosage: 10 MG/325 MG EVERY 6 HOURS
     Route: 048
  6. NEXIUM [Concomitant]
  7. CHANTIX [Suspect]
     Indication: EX-TOBACCO USER
     Route: 048
     Dates: start: 20110301, end: 20110101
  8. PAXIL [Concomitant]
  9. LISINOPRIL [Concomitant]
  10. TRIAMTERENE AND HYDROCHLOROTHIAZIDE [Concomitant]

REACTIONS (7)
  - NERVOUSNESS [None]
  - DRUG INEFFECTIVE [None]
  - AGITATION [None]
  - GINGIVAL INFECTION [None]
  - INSOMNIA [None]
  - PANIC DISORDER [None]
  - MEMORY IMPAIRMENT [None]
